FAERS Safety Report 8187702-9 (Version None)
Quarter: 2012Q1

REPORT INFORMATION
  Report Type: 
  Country: None (occurrence: None)
  Receive Date: 20120306
  Receipt Date: 20111129
  Transmission Date: 20120608
  Serious: Yes (Other)
  Sender: FDA-Public Use
  Company Number: US-GLAXOSMITHKLINE-A0956911A

PATIENT
  Age: 13 Year
  Sex: Male
  Weight: 56.8 kg

DRUGS (11)
  1. TREPROSTINIL SODIUM [Suspect]
     Indication: COR PULMONALE CHRONIC
     Dosage: 6PUFF FOUR TIMES PER DAY
     Route: 055
     Dates: start: 20110318
  2. LETAIRIS [Concomitant]
     Indication: PULMONARY HYPERTENSION
     Dosage: 5MG PER DAY
     Route: 048
  3. OXYGEN [Concomitant]
     Route: 055
  4. LAMICTAL [Suspect]
     Indication: PRODUCT USED FOR UNKNOWN INDICATION
     Dosage: 100MG AT NIGHT
     Route: 048
  5. PIOGLITAZONE [Concomitant]
     Dosage: 15MG PER DAY
     Route: 048
  6. ABILIFY [Suspect]
     Indication: PRODUCT USED FOR UNKNOWN INDICATION
     Dosage: 5MG PER DAY
     Route: 048
     Dates: end: 20111001
  7. SEROQUEL [Suspect]
     Indication: PRODUCT USED FOR UNKNOWN INDICATION
     Route: 048
  8. SINGULAIR [Concomitant]
     Dosage: 5MG PER DAY
     Route: 048
  9. LITHIUM CARBONATE [Suspect]
     Indication: PRODUCT USED FOR UNKNOWN INDICATION
     Dosage: 750MG PER DAY
     Route: 048
     Dates: end: 20111001
  10. LORATADINE [Concomitant]
     Dosage: 10MG PER DAY
     Route: 048
  11. VITAMIN B COMPLEX CAP [Concomitant]
     Dosage: 1TAB PER DAY
     Route: 048

REACTIONS (2)
  - SYNCOPE [None]
  - DIZZINESS [None]
